FAERS Safety Report 6820890-2 (Version None)
Quarter: 2010Q3

REPORT INFORMATION
  Report Type: 
  Country: None (occurrence: None)
  Receive Date: 20100707
  Receipt Date: 20070626
  Transmission Date: 20110219
  Serious: No
  Sender: FDA-Public Use
  Company Number: US-PFIZER INC-2007019732

PATIENT
  Sex: Female
  Weight: 67.13 kg

DRUGS (5)
  1. ZOLOFT [Suspect]
     Indication: DEPRESSION
     Route: 048
     Dates: start: 20060201, end: 20060401
  2. ZOLOFT [Suspect]
     Indication: ANXIETY
  3. MAXZIDE [Concomitant]
  4. ACTONEL [Concomitant]
  5. TRICOR [Concomitant]

REACTIONS (1)
  - COUGH [None]
